FAERS Safety Report 16666971 (Version 1)
Quarter: 2019Q3

REPORT INFORMATION
  Report Type: Spontaneous
  Country: ZA (occurrence: ZA)
  Receive Date: 20190805
  Receipt Date: 20190805
  Transmission Date: 20191004
  Serious: Yes (Hospitalization, Other)
  Sender: FDA-Public Use
  Company Number: ZA-HORMOSAN PHARMA GMBH-2019-04794

PATIENT
  Sex: Female

DRUGS (4)
  1. DYNA LAMOTRIGINE [Suspect]
     Active Substance: LAMOTRIGINE
     Indication: DEPRESSION
     Dosage: 25 MILLIGRAM
     Route: 048
  2. URBANOL [Suspect]
     Active Substance: CLOBAZAM
     Indication: STRESS
     Dosage: 10 MILLIGRAM
     Route: 048
  3. PREXUM PLUS [INDAPAMIDE;PERINDOPRIL] [Suspect]
     Active Substance: INDAPAMIDE\PERINDOPRIL
     Indication: HYPERTENSION
     Dosage: 5/1.25 MILLIGRAM
     Route: 048
  4. DIAGLUCIDE MR [Suspect]
     Active Substance: GLICLAZIDE
     Indication: DIABETES MELLITUS
     Dosage: 60 MILLIGRAM
     Route: 048

REACTIONS (2)
  - Product use in unapproved indication [Unknown]
  - Cardiac failure [Unknown]
